FAERS Safety Report 7272119-1 (Version None)
Quarter: 2011Q1

REPORT INFORMATION
  Report Type: 
  Country: None (occurrence: None)
  Receive Date: 20110203
  Receipt Date: 20110125
  Transmission Date: 20110831
  Serious: Yes (Hospitalization)
  Sender: FDA-Public Use
  Company Number: ES-ASTRAZENECA-2011SE04889

PATIENT
  Age: 49 Year
  Sex: Male

DRUGS (5)
  1. RISPERDAL [Suspect]
     Route: 048
     Dates: start: 20061001
  2. AKINETON [Concomitant]
     Route: 048
     Dates: start: 20061001, end: 20101026
  3. DEPAKENE [Suspect]
     Route: 048
     Dates: start: 20061001
  4. SEROQUEL [Suspect]
     Route: 048
     Dates: start: 20061001
  5. ZOCOR [Concomitant]
     Route: 048
     Dates: start: 20061001, end: 20101026

REACTIONS (1)
  - INAPPROPRIATE ANTIDIURETIC HORMONE SECRETION [None]
